FAERS Safety Report 7499833-7 (Version None)
Quarter: 2011Q2

REPORT INFORMATION
  Report Type: 
  Country: None (occurrence: None)
  Receive Date: 20110524
  Receipt Date: 20110516
  Transmission Date: 20111010
  Serious: Yes (Death, Other)
  Sender: FDA-Public Use
  Company Number: AR-GENZYME-CERZ-1001905

PATIENT
  Age: 3 Day

DRUGS (1)
  1. CEREZYME [Suspect]
     Indication: GAUCHER'S DISEASE
     Dosage: 2000 U, Q2W
     Dates: start: 20030101

REACTIONS (2)
  - HYDROCEPHALUS [None]
  - CONGENITAL ANOMALY [None]
